FAERS Safety Report 21232970 (Version 3)
Quarter: 2022Q4

REPORT INFORMATION
  Report Type: Spontaneous
  Country: US (occurrence: US)
  Receive Date: 20220819
  Receipt Date: 20221129
  Transmission Date: 20230113
  Serious: Yes (Death)
  Sender: FDA-Public Use
  Company Number: US-ALKERMES INC.-ALK-2022-003989

PATIENT
  Age: 55 Year
  Sex: Male

DRUGS (2)
  1. VIVITROL [Suspect]
     Active Substance: NALTREXONE
     Indication: Drug dependence
     Dosage: 380 MILLIGRAM, QMO
     Route: 030
     Dates: start: 20220228, end: 202206
  2. PREDNISONE [Concomitant]
     Active Substance: PREDNISONE
     Indication: Respiratory disorder
     Dosage: UNK
     Route: 065

REACTIONS (3)
  - Death [Fatal]
  - Drug dependence [Recovered/Resolved]
  - Major depression [Recovered/Resolved]

NARRATIVE: CASE EVENT DATE: 20220701
